FAERS Safety Report 12644884 (Version 1)
Quarter: 2016Q3

REPORT INFORMATION
  Report Type: Spontaneous
  Country: US (occurrence: US)
  Receive Date: 20160811
  Receipt Date: 20160811
  Transmission Date: 20161109
  Serious: Yes (Other)
  Sender: FDA-Public Use
  Company Number: US-ENDO PHARMACEUTICALS INC.-2016-002651

PATIENT
  Sex: Female
  Weight: 50.39 kg

DRUGS (14)
  1. PREDNISONE TABLETS [Suspect]
     Active Substance: PREDNISONE
     Indication: RHEUMATOID ARTHRITIS
     Route: 048
  2. CALCIUM CITRATE WITH VITAMIN D3 [Concomitant]
     Indication: OSTEOPOROSIS
     Dosage: 2 CAPSULES ONCE A DAY
     Route: 048
  3. METHOTREXATE. [Concomitant]
     Active Substance: METHOTREXATE
     Indication: RHEUMATOID ARTHRITIS
     Route: 065
  4. OMEGA THREE FISH OIL [Concomitant]
     Indication: ROUTINE HEALTH MAINTENANCE
     Route: 065
  5. MULTIVITAMIN [Concomitant]
     Active Substance: VITAMINS
     Indication: VITAMIN SUPPLEMENTATION
     Route: 048
  6. GLUCOSAMINE W/CHONDROITIN [Concomitant]
     Active Substance: CHONDROITIN SULFATE A\GLUCOSAMINE
     Indication: ARTHROPATHY
     Route: 048
  7. BROMALINE [Concomitant]
     Indication: INFLAMMATION
     Dosage: 2 CAPSULES ONCE A DAY
     Route: 048
  8. DIAZEPAM TABLETS 10 MG [Concomitant]
     Indication: SLEEP DISORDER
     Dosage: 1/2 TABLET AT NIGHT WILL TAKE ANOTHER 1/2 TABLET WHEN SHE WAKES UP BETWEEN 2-3 AM
     Route: 048
  9. EXCEDRIN MIGRAINE [Concomitant]
     Active Substance: ACETAMINOPHEN\ASPIRIN\CAFFEINE
     Indication: PROPHYLAXIS
     Dosage: 2 IN THE MORNING AND SOMETIMES NEED TO TAKE 2 LATER IN THE DAY
     Route: 048
  10. LANTUS [Concomitant]
     Active Substance: INSULIN GLARGINE
     Indication: DIABETES MELLITUS
     Dosage: 15 UNITS DAILY IN THE MORNING
     Route: 065
  11. TRAZODONE HYDROCHLORIDE TABLETS [Concomitant]
     Active Substance: TRAZODONE HYDROCHLORIDE
     Indication: SLEEP DISORDER
     Dosage: ONE AT NIGHT
     Route: 048
  12. XELJANZ [Concomitant]
     Active Substance: TOFACITINIB CITRATE
     Indication: RHEUMATOID ARTHRITIS
     Route: 048
     Dates: start: 201602
  13. FOLIC ACID. [Concomitant]
     Active Substance: FOLIC ACID
     Indication: PROPHYLAXIS
     Route: 048
  14. LEVOTHYROXINE SODIUM TABLETS [Concomitant]
     Active Substance: LEVOTHYROXINE SODIUM
     Indication: HYPOTHYROIDISM
     Route: 048

REACTIONS (2)
  - Blood glucose increased [Unknown]
  - Condition aggravated [Unknown]

NARRATIVE: CASE EVENT DATE: 2016
